FAERS Safety Report 19025335 (Version 1)
Quarter: 2021Q1

REPORT INFORMATION
  Report Type: Spontaneous
  Country: US (occurrence: US)
  Receive Date: 20210316
  Receipt Date: 20210316
  Transmission Date: 20210420
  Serious: Yes (Hospitalization)
  Sender: FDA-Public Use
  Company Number: None

PATIENT
  Age: 76 Year
  Sex: Female
  Weight: 89.36 kg

DRUGS (1)
  1. RIVAROXABAN (RIVAROXABAN 20MG TAB) [Suspect]
     Active Substance: RIVAROXABAN
     Indication: CARDIOVASCULAR DISORDER
     Dosage: OTHER FREQUENCY:AM
     Route: 048
     Dates: start: 20190405, end: 20191202

REACTIONS (2)
  - Dizziness [None]
  - Gastric haemorrhage [None]

NARRATIVE: CASE EVENT DATE: 20191125
